FAERS Safety Report 9098491 (Version 1)
Quarter: 2013Q1

REPORT INFORMATION
  Report Type: Spontaneous
  Country: US (occurrence: US)
  Receive Date: 20130213
  Receipt Date: 20130213
  Transmission Date: 20140127
  Serious: Yes (Other)
  Sender: FDA-Public Use
  Company Number: US-WATSON-2013-01825

PATIENT
  Age: 60 Year
  Sex: Male

DRUGS (4)
  1. TRAZODONE HYDROCHLORIDE [Suspect]
     Indication: DEPRESSION
     Dosage: 100 MG, DAILY
     Route: 065
  2. ESCITALOPRAM [Suspect]
     Indication: DEPRESSION
     Dosage: 20 MG, DAILY
     Route: 048
  3. METHYLTHIONINIUM CHLORIDE [Suspect]
     Indication: VASOPLEGIA SYNDROME
     Dosage: 1 MG/KG BOLUS, FOLLOWED BY 0.5 MG/KG/HOUR CONTINOUS INFUSION
     Route: 065
  4. PHENYLEPHRINE [Concomitant]
     Indication: PROCEDURAL HYPOTENSION
     Dosage: UNK, UNKNOWN
     Route: 065

REACTIONS (2)
  - Serotonin syndrome [Recovered/Resolved]
  - Drug interaction [Recovered/Resolved]
